FAERS Safety Report 7751299-5 (Version None)
Quarter: 2011Q3

REPORT INFORMATION
  Report Type: 
  Country: None (occurrence: None)
  Receive Date: 20110912
  Receipt Date: 20110826
  Transmission Date: 20111222
  Serious: Yes (Other)
  Sender: FDA-Public Use
  Company Number: 2011P1008519

PATIENT
  Sex: Male
  Weight: 76.6579 kg

DRUGS (8)
  1. VITAMIN TAB [Concomitant]
  2. LAMOTRIGINE [Suspect]
     Dosage: 200 MG, QD; 300 MG; QD
     Dates: start: 20110313
  3. LAMOTRIGINE [Suspect]
     Dosage: 200 MG, QD; 300 MG; QD
     Dates: end: 20110608
  4. ACCELL [Concomitant]
  5. LAMICTAL [Suspect]
     Dosage: 200 MG;QD;PO, 300 MG;QD;PO, 300 MG;QD;PO
     Route: 048
     Dates: start: 20080901, end: 20110312
  6. LAMICTAL [Suspect]
     Dosage: 200 MG;QD;PO, 300 MG;QD;PO, 300 MG;QD;PO
     Route: 048
     Dates: start: 20110609, end: 20110101
  7. LAMICTAL [Suspect]
     Dosage: 200 MG;QD;PO, 300 MG;QD;PO, 300 MG;QD;PO
     Route: 048
     Dates: start: 20110101
  8. LOVAZA [Concomitant]

REACTIONS (8)
  - DRUG INEFFECTIVE [None]
  - TOXICITY TO VARIOUS AGENTS [None]
  - OVERDOSE [None]
  - SENSORY DISTURBANCE [None]
  - ABASIA [None]
  - VISUAL IMPAIRMENT [None]
  - APHASIA [None]
  - DYSGEUSIA [None]
